FAERS Safety Report 7410801-3 (Version None)
Quarter: 2011Q2

REPORT INFORMATION
  Report Type: 
  Country: None (occurrence: None)
  Receive Date: 20110413
  Receipt Date: 20110408
  Transmission Date: 20111010
  Serious: No
  Sender: FDA-Public Use
  Company Number: US-PFIZER INC-2011043586

PATIENT
  Sex: Female
  Weight: 54.422 kg

DRUGS (3)
  1. ADVIL CONGESTION RELIEF [Suspect]
     Indication: NASAL CONGESTION
     Dosage: 10 MG, 2X/DAY
     Route: 048
     Dates: start: 20110219, end: 20110221
  2. ADVAIR DISKUS 100/50 [Concomitant]
     Indication: ASTHMA
     Dosage: UNK
  3. ADVIL CONGESTION RELIEF [Suspect]
     Dosage: UNK
     Route: 048
     Dates: start: 20110406, end: 20110407

REACTIONS (2)
  - NASAL CONGESTION [None]
  - DRUG INEFFECTIVE [None]
